FAERS Safety Report 6965394-1 (Version None)
Quarter: 2010Q3

REPORT INFORMATION
  Report Type: 
  Country: None (occurrence: None)
  Receive Date: 20100903
  Receipt Date: 20100830
  Transmission Date: 20110219
  Serious: Yes (Death)
  Sender: FDA-Public Use
  Company Number: A0878400A

PATIENT
  Age: 70 Year
  Sex: Female

DRUGS (5)
  1. AVANDIA [Suspect]
     Indication: PRODUCT USED FOR UNKNOWN INDICATION
  2. NEURONTIN [Concomitant]
  3. CARDIZEM CD [Concomitant]
  4. XANAX [Concomitant]
  5. DIOVAN [Concomitant]

REACTIONS (1)
  - MYOCARDIAL INFARCTION [None]
